FAERS Safety Report 7898151-2 (Version None)
Quarter: 2011Q4

REPORT INFORMATION
  Report Type: 
  Country: None (occurrence: None)
  Receive Date: 20111107
  Receipt Date: 20111026
  Transmission Date: 20120403
  Serious: Yes (Hospitalization, Disabling)
  Sender: FDA-Public Use
  Company Number: US-MERCK-1107USA03829

PATIENT
  Age: 79 Year
  Sex: Female
  Weight: 95 kg

DRUGS (6)
  1. FOSAMAX [Suspect]
     Indication: OSTEOPOROSIS
     Route: 048
     Dates: start: 20030630, end: 20070218
  2. ALLEGRA [Concomitant]
     Route: 048
     Dates: start: 20020101
  3. ADVAIR DISKUS 100/50 [Concomitant]
     Route: 048
     Dates: start: 20030101
  4. FOSAMAX [Suspect]
     Indication: OSTEOPENIA
     Route: 048
     Dates: start: 20030630, end: 20070218
  5. NEXIUM [Concomitant]
     Route: 065
  6. FOSAMAX [Suspect]
     Route: 048
     Dates: start: 20080404, end: 20080601

REACTIONS (17)
  - ASTHMA [None]
  - PNEUMONIA PRIMARY ATYPICAL [None]
  - DIVERTICULITIS [None]
  - HYPERSENSITIVITY [None]
  - URINARY TRACT INFECTION [None]
  - IMPAIRED HEALING [None]
  - PERIODONTAL DISEASE [None]
  - CHRONIC OBSTRUCTIVE PULMONARY DISEASE [None]
  - DENTAL CARIES [None]
  - CYSTOCELE [None]
  - OSTEONECROSIS OF JAW [None]
  - ORAL INFECTION [None]
  - GINGIVAL RECESSION [None]
  - CYSTITIS [None]
  - EDENTULOUS [None]
  - BRONCHITIS [None]
  - HYPERLIPIDAEMIA [None]
